FAERS Safety Report 6723345-9 (Version None)
Quarter: 2010Q2

REPORT INFORMATION
  Report Type: 
  Country: None (occurrence: None)
  Receive Date: 20100511
  Receipt Date: 20091209
  Transmission Date: 20101027
  Serious: Yes (Hospitalization)
  Sender: FDA-Public Use
  Company Number: 056-20484-09100969

PATIENT
  Age: 74 Year
  Sex: Male
  Weight: 86 kg

DRUGS (10)
  1. INNOHEP (TINZAPARIN SODIUM) (2000 IU (INTERNATIONAL UNIT)) [Suspect]
     Indication: ISCHAEMIC STROKE
     Dosage: SUBCUTANEOUS
     Route: 058
     Dates: start: 20000919, end: 20001003
  2. COUMADIN [Suspect]
     Indication: ISCHAEMIC STROKE
     Dosage: 2 MG (2 MG,1 IN 1 D), PER ORAL
     Route: 048
     Dates: start: 20000925, end: 20001003
  3. ASASANTIN (ACETYLSALICYCLIC ACID, DIPYRIDAMOLE) (200 MILLIGRAM, CAPSUL [Suspect]
     Indication: CEREBROVASCULAR ACCIDENT
     Dosage: 400 MG (200 MG, 2 IN 1 D), PER ORAL
     Route: 048
     Dates: start: 20000919, end: 20001003
  4. DIAMICRON (GLICLAZIDE) [Concomitant]
  5. NICOBION (NICOTINAMIDE) [Concomitant]
  6. CIPRALAN [Concomitant]
  7. PRAVASTATIN SODIUM [Concomitant]
  8. PAROXETINE HYDROCHLORIDE [Concomitant]
  9. RANITIDINE HYDROCHLORIDE [Concomitant]
  10. NEUROBION (PYRIDOXINE HYDROCHLORIDE, THIAMINE, HYDROCHLORIDE, HYDROXOC [Concomitant]

REACTIONS (3)
  - CEREBRAL HAEMORRHAGE [None]
  - DRUG INTERACTION [None]
  - OFF LABEL USE [None]
